FAERS Safety Report 9702507 (Version 3)
Quarter: 2014Q2

REPORT INFORMATION
  Report Type: Spontaneous
  Country: CA (occurrence: None)
  Receive Date: 20131120
  Receipt Date: 20140409
  Transmission Date: 20141212
  Serious: Yes (Other)
  Sender: FDA-Public Use
  Company Number: 2013-003644

PATIENT
  Age: 32 Year
  Sex: Male
  Weight: 53.7 kg

DRUGS (18)
  1. ENABLEX [Suspect]
     Indication: PROSTATITIS
     Dosage: ONCE A DAY
     Route: 048
     Dates: start: 20121101, end: 20130201
  2. ENABLEX [Suspect]
     Indication: ULCER
     Dosage: ONCE A DAY
     Route: 048
     Dates: start: 20121101, end: 20130201
  3. ENABLEX [Suspect]
     Indication: BLADDER DISORDER
     Dosage: ONCE A DAY
     Route: 048
     Dates: start: 20121101, end: 20130201
  4. CYMBALTA [Suspect]
     Indication: CYSTITIS ULCERATIVE
     Route: 048
     Dates: start: 20121101, end: 20130325
  5. DETROL LA (TOLTERODINE L-TARTRATE) [Suspect]
     Indication: PROSTATITIS
     Route: 048
     Dates: start: 20120516, end: 20120605
  6. DETROL LA (TOLTERODINE L-TARTRATE) [Suspect]
     Indication: ULCER
     Route: 048
     Dates: start: 20120516, end: 20120605
  7. DETROL LA (TOLTERODINE L-TARTRATE) [Suspect]
     Indication: BLADDER DISORDER
     Route: 048
     Dates: start: 20120516, end: 20120605
  8. ELMIRON (PENTOSAN POLYSULFATE SODIUM) [Suspect]
     Indication: CYSTITIS
     Route: 048
     Dates: start: 20130424, end: 20130527
  9. TOVIAZ [Suspect]
     Indication: CYSTITIS ULCERATIVE
     Dosage: 4-8 MG QD OI
     Route: 048
     Dates: start: 20121101, end: 20130115
  10. MARAVIROC [Suspect]
     Indication: HIV INFECTION
     Route: 048
     Dates: start: 20120315, end: 20130508
  11. RALTEGRAVIR (RALTEGRAVIR) [Suspect]
     Indication: HIV INFECTION
     Route: 048
     Dates: start: 20120315, end: 20130508
  12. LOPINAVIR W/RITONAVIR [Suspect]
     Indication: HIV INFECTION
     Route: 048
     Dates: start: 20120315
  13. TRUVADA [Suspect]
     Indication: HIV INFECTION
     Route: 048
     Dates: start: 20120315, end: 20130508
  14. GABAPENTIN [Concomitant]
  15. OXYCOCET (OXYCODONE HYDROCHLORIDE PARACETAMOL) [Concomitant]
  16. ATIVAN (LORAZEPAM) [Concomitant]
  17. WELLBUTRIN (BUPROPION HYDROCHLORIDE) [Concomitant]
  18. FLOXIN (OFLOXACIN) [Concomitant]

REACTIONS (6)
  - Neutropenia [None]
  - Night sweats [None]
  - Cystitis ulcerative [None]
  - Cystitis interstitial [None]
  - Depression [None]
  - Cystitis [None]
